FAERS Safety Report 8554047 (Version 2)
Quarter: 2013Q2

REPORT INFORMATION
  Report Type: Spontaneous
  Country: US (occurrence: None)
  Receive Date: 20120315
  Receipt Date: 20120703
  Transmission Date: 20140414
  Serious: No
  Sender: FDA-Public Use
  Company Number: PHHY2011US49222

PATIENT
  Age: 53 Year
  Sex: Female
  Weight: 61.2 kg

DRUGS (4)
  1. GILENYA [Suspect]
     Indication: RELAPSING-REMITTING MULTIPLE SCLEROSIS
     Route: 048
     Dates: start: 20110601
  2. HERBAL PREPARATION [Concomitant]
  3. L-LYSINE (LYSINE) [Concomitant]
  4. OMEGA 3 (FISH OIL) [Concomitant]

REACTIONS (7)
  - INCREASED APPETITE [None]
  - OROPHARYNGEAL PAIN [None]
  - ENERGY INCREASED [None]
  - FLUSHING [None]
  - HEART RATE DECREASED [None]
  - Weight increased [None]
  - Sleep disorder [None]
